FAERS Safety Report 5995735-3 (Version None)
Quarter: 2008Q4

REPORT INFORMATION
  Report Type: 
  Country: None (occurrence: None)
  Receive Date: 20081209
  Receipt Date: 20081126
  Transmission Date: 20090506
  Serious: Yes (Hospitalization)
  Sender: FDA-Public Use
  Company Number: B0549236A

PATIENT
  Age: 23 Year
  Sex: Male

DRUGS (4)
  1. CEFUROXIME SODIUM [Suspect]
  2. BETAMETHASONE (FORMULATION UNKNOWN) (GENERIC) (BETAMETHASONE) [Suspect]
     Dosage: ORAL
     Route: 048
  3. NIMESULIDE (FORMULATION UNKNOWN) (NIMESULIDE) [Suspect]
  4. CEFTRIAXONE [Suspect]

REACTIONS (4)
  - ACUTE HEPATIC FAILURE [None]
  - HEPATITIS C [None]
  - HEPATOTOXICITY [None]
  - LIVER TRANSPLANT [None]
